FAERS Safety Report 9552750 (Version 2)
Quarter: 2013Q3

REPORT INFORMATION
  Report Type: Spontaneous
  Country: US (occurrence: US)
  Receive Date: 20130925
  Receipt Date: 20130925
  Transmission Date: 20140515
  Serious: No
  Sender: FDA-Public Use
  Company Number: US-PURDUE-USA-2012-0096263

PATIENT
  Age: 53 Year
  Sex: Female
  Weight: 70.3 kg

DRUGS (3)
  1. MORPHINE SULFATE EXTENDED-RELEASE TABLETS (RHODES 74-862) [Suspect]
     Indication: BACK PAIN
     Dosage: 15 MG, UNK
     Route: 048
     Dates: start: 2012, end: 2012
  2. ZYRTEC [Concomitant]
     Indication: PRODUCT USED FOR UNKNOWN INDICATION
     Dosage: 10 MG, DAILY
  3. ALPRAZOLAM [Concomitant]
     Indication: PRODUCT USED FOR UNKNOWN INDICATION
     Dosage: 0.5 MG, DAILY

REACTIONS (1)
  - Oral mucosal blistering [Unknown]
